FAERS Safety Report 4893092-7 (Version None)
Quarter: 2005Q4

REPORT INFORMATION
  Report Type: 
  Country: None (occurrence: None)
  Receive Date: 20051220
  Receipt Date: 20050209
  Transmission Date: 20060501
  Serious: Yes (Other)
  Sender: FDA-Public Use
  Company Number: PHEH2005US01908

PATIENT
  Age: 10 Year
  Sex: Female
  Weight: 27 kg

DRUGS (6)
  1. AREDIA [Suspect]
     Indication: OSTEOPOROSIS
     Dosage: 27 MG, QD, IV INFUSION
     Route: 042
     Dates: start: 20050208, end: 20050210
  2. GABAPENTIN [Concomitant]
  3. MULTIVIT (VITAMINS NOS) [Concomitant]
  4. ASPIRIN [Concomitant]
  5. IRON (IRON) [Concomitant]
  6. ENALAPRIL MALEATE [Concomitant]

REACTIONS (1)
  - HYPOKALAEMIA [None]
